FAERS Safety Report 5013838-7 (Version None)
Quarter: 2006Q2

REPORT INFORMATION
  Report Type: 
  Country: None (occurrence: None)
  Receive Date: 20060530
  Receipt Date: 20060518
  Transmission Date: 20061013
  Serious: Yes (Hospitalization)
  Sender: FDA-Public Use
  Company Number: US-ROCHE-448888

PATIENT
  Age: 48 Year
  Sex: Female

DRUGS (2)
  1. PEGASYS [Suspect]
     Route: 065
     Dates: start: 20060220
  2. COPEGUS [Suspect]
     Route: 065
     Dates: start: 20060220

REACTIONS (2)
  - DEHYDRATION [None]
  - WHITE BLOOD CELL COUNT DECREASED [None]
